FAERS Safety Report 4272664-7 (Version None)
Quarter: 2004Q1

REPORT INFORMATION
  Report Type: 
  Country: None (occurrence: None)
  Receive Date: 20040115
  Receipt Date: 20040115
  Transmission Date: 20041129
  Serious: Yes (Hospitalization)
  Sender: FDA-Public Use
  Company Number: None

PATIENT
  Sex: Female
  Weight: 8 kg

DRUGS (2)
  1. CYCLOPHOSPHAMIDE [Suspect]
     Indication: NEUROBLASTOMA
     Dosage: 254MG  ONCE  INTRAVENOUS
     Route: 042
     Dates: start: 20030919, end: 20030919
  2. DOXORUBICIN HCL [Suspect]
     Indication: NEUROBLASTOMA
     Dosage: 7.5MG  ONCE  INTRAVENOUS
     Route: 042
     Dates: start: 20030919, end: 20030919

REACTIONS (6)
  - CHYLOTHORAX [None]
  - LYMPHATIC DISORDER [None]
  - POST PROCEDURAL COMPLICATION [None]
  - RESPIRATORY TRACT CONGESTION [None]
  - SURGICAL PROCEDURE REPEATED [None]
  - TACHYPNOEA [None]
